FAERS Safety Report 8804484 (Version 2)
Quarter: 2015Q2

REPORT INFORMATION
  Report Type: Report from Study
  Country: US (occurrence: US)
  Receive Date: 20120924
  Receipt Date: 20150617
  Transmission Date: 20150821
  Serious: Yes (Death, Other)
  Sender: FDA-Public Use
  Company Number: US-ROCHE-1104176

PATIENT
  Age: 70 Year
  Sex: Female
  Weight: 133 kg

DRUGS (3)
  1. AVASTIN [Suspect]
     Active Substance: BEVACIZUMAB
     Indication: BREAST CANCER FEMALE
     Dosage: HE RECEIVED SECOND DOSE ON 26/FEB/2006. STOP DATE 16/FEB/2006
     Route: 042
     Dates: start: 20060202
  2. ZOMETA [Concomitant]
     Active Substance: ZOLEDRONIC ACID
  3. TAXOTERE [Concomitant]
     Active Substance: DOCETAXEL

REACTIONS (6)
  - Death [Fatal]
  - Disease progression [Unknown]
  - Decreased appetite [Unknown]
  - Off label use [Unknown]
  - Pain [Unknown]
  - Asthenia [Unknown]

NARRATIVE: CASE EVENT DATE: 20060508
